FAERS Safety Report 7118003-5 (Version None)
Quarter: 2010Q4

REPORT INFORMATION
  Report Type: 
  Country: None (occurrence: None)
  Receive Date: 20101123
  Receipt Date: 20101116
  Transmission Date: 20110411
  Serious: No
  Sender: FDA-Public Use
  Company Number: US-ROXANE LABORATORIES, INC.-2010-RO-01521RO

PATIENT
  Sex: Female

DRUGS (2)
  1. LEUCOVORIN CALCIUM [Suspect]
  2. METHOTREXATE [Suspect]

REACTIONS (3)
  - MIGRAINE [None]
  - NAUSEA [None]
  - VISUAL IMPAIRMENT [None]
